FAERS Safety Report 18019584 (Version 1)
Quarter: 2020Q3

REPORT INFORMATION
  Report Type: Spontaneous
  Country: TR (occurrence: TR)
  Receive Date: 20200714
  Receipt Date: 20200714
  Transmission Date: 20201103
  Serious: Yes (Hospitalization, Other)
  Sender: FDA-Public Use
  Company Number: TR-INDICUS PHARMA-000699

PATIENT
  Age: 25 Year
  Sex: Female

DRUGS (1)
  1. METFORMIN [Suspect]
     Active Substance: METFORMIN HYDROCHLORIDE
     Dosage: 100 TABLETS OF 1000 MG

REACTIONS (12)
  - Confusional state [Unknown]
  - Suicide attempt [Unknown]
  - Toxicity to various agents [Unknown]
  - Renal failure [Recovering/Resolving]
  - Vomiting [Unknown]
  - Nausea [Unknown]
  - Pneumonia [Recovering/Resolving]
  - Abdominal pain [Unknown]
  - Lactic acidosis [Recovering/Resolving]
  - Thrombocytopenia [Unknown]
  - Loss of consciousness [Recovered/Resolved]
  - Overdose [Unknown]
